FAERS Safety Report 7845566-4 (Version None)
Quarter: 2011Q4

REPORT INFORMATION
  Report Type: 
  Country: None (occurrence: None)
  Receive Date: 20111025
  Receipt Date: 20111012
  Transmission Date: 20120403
  Serious: Yes (Other)
  Sender: FDA-Public Use
  Company Number: JP-MYLANLABS-2011S1021311

PATIENT
  Age: 74 Year
  Sex: Female

DRUGS (6)
  1. CARBOPLATIN [Suspect]
     Indication: UTERINE CANCER
     Route: 041
     Dates: start: 20110817
  2. PACLITAXEL [Suspect]
     Route: 041
  3. PACLITAXEL [Suspect]
     Indication: UTERINE CANCER
     Route: 041
     Dates: start: 20110817
  4. PACLITAXEL [Suspect]
     Route: 041
     Dates: start: 20111005
  5. CARBOPLATIN [Suspect]
     Route: 041
  6. CARBOPLATIN [Suspect]
     Route: 041
     Dates: start: 20111005

REACTIONS (1)
  - INTERSTITIAL LUNG DISEASE [None]
